FAERS Safety Report 24994680 (Version 5)
Quarter: 2025Q2

REPORT INFORMATION
  Report Type: Spontaneous
  Country: US (occurrence: US)
  Receive Date: 20250221
  Receipt Date: 20250620
  Transmission Date: 20250717
  Serious: Yes (Other)
  Sender: AMGEN
  Company Number: US-AMGEN-USASP2025031947

PATIENT
  Age: 40 Year
  Sex: Female
  Weight: 90 kg

DRUGS (27)
  1. TEPEZZA [Suspect]
     Active Substance: TEPROTUMUMAB-TRBW
     Indication: Endocrine ophthalmopathy
     Dosage: 980 MILLIGRAM, Q3WK, (FIRST INFUSION)
     Route: 040
     Dates: start: 20201231
  2. TEPEZZA [Suspect]
     Active Substance: TEPROTUMUMAB-TRBW
     Dosage: 1960 MILLIGRAM, Q3WK, (SECOND INFUSION)
     Route: 040
     Dates: start: 20210123
  3. TEPEZZA [Suspect]
     Active Substance: TEPROTUMUMAB-TRBW
     Dosage: 1960 MILLIGRAM, Q3WK, (THIRD INFUSION)
     Route: 040
     Dates: start: 20230508
  4. TEPEZZA [Suspect]
     Active Substance: TEPROTUMUMAB-TRBW
     Dosage: 1960 MILLIGRAM, Q3WK, (FOURTH INFUSION)
     Route: 040
     Dates: start: 20230528
  5. TEPEZZA [Suspect]
     Active Substance: TEPROTUMUMAB-TRBW
     Dosage: 1960 MILLIGRAM, Q3WK, (FIFTH INFUSION)
     Route: 040
     Dates: start: 20230619
  6. TEPEZZA [Suspect]
     Active Substance: TEPROTUMUMAB-TRBW
     Dosage: 1960 MILLIGRAM, Q3WK, (SIXTH INFUSION)
     Route: 040
     Dates: start: 20210710
  7. TEPEZZA [Suspect]
     Active Substance: TEPROTUMUMAB-TRBW
     Dosage: 1960 MILLIGRAM, Q3WK, (SEVENTH INFUSION)
     Route: 040
     Dates: start: 20210731
  8. TEPEZZA [Suspect]
     Active Substance: TEPROTUMUMAB-TRBW
     Dosage: 1960 MILLIGRAM, Q3WK, (EIGHT INFUSION)
     Route: 040
     Dates: start: 20210823
  9. LEVOTHYROXINE SODIUM [Concomitant]
     Active Substance: LEVOTHYROXINE SODIUM
     Dosage: 50 MICROGRAM, QD
     Route: 048
  10. LEVOTHYROXINE SODIUM [Concomitant]
     Active Substance: LEVOTHYROXINE SODIUM
     Dosage: 150 MICROGRAM, QD
     Route: 048
  11. HYDROCHLOROTHIAZIDE [Concomitant]
     Active Substance: HYDROCHLOROTHIAZIDE
     Dosage: 25 MILLIGRAM, QD
     Route: 048
  12. ACYCLOVIR [Concomitant]
     Active Substance: ACYCLOVIR
     Dosage: 800 MILLIGRAM, TID
     Route: 048
  13. ACYCLOVIR [Concomitant]
     Active Substance: ACYCLOVIR
     Dosage: 800 MILLIGRAM, QD
     Route: 048
  14. AMLODIPINE BESYLATE [Concomitant]
     Active Substance: AMLODIPINE BESYLATE
     Dosage: 5 MILLIGRAM, QD
     Route: 048
  15. PHENTERMINE HYDROCHLORIDE [Concomitant]
     Active Substance: PHENTERMINE HYDROCHLORIDE
     Dosage: 37.5 MILLIGRAM, QD
     Route: 048
  16. PHENTERMINE HYDROCHLORIDE [Concomitant]
     Active Substance: PHENTERMINE HYDROCHLORIDE
     Dosage: 30 MILLIGRAM, QD
     Route: 048
  17. EUTHYROX [Concomitant]
     Active Substance: LEVOTHYROXINE SODIUM
     Dosage: 175 MICROGRAM, QD
     Route: 048
  18. FLUTICASONE PROPIONATE [Concomitant]
     Active Substance: FLUTICASONE PROPIONATE
     Dosage: 50 MICROGRAM, QD
     Route: 045
  19. CALCITRIOL [Concomitant]
     Active Substance: CALCITRIOL
     Dosage: 0.25 MICROGRAM, QD
     Route: 048
  20. VITAMIN D3 [Concomitant]
     Active Substance: CHOLECALCIFEROL
     Dosage: UNK UNK, QD
     Route: 048
  21. BUSPIRONE HCL [Concomitant]
     Active Substance: BUSPIRONE HYDROCHLORIDE
     Indication: Anxiety
     Dosage: 15 MILLIGRAM, BID
     Route: 048
  22. BUSPIRONE HCL [Concomitant]
     Active Substance: BUSPIRONE HYDROCHLORIDE
     Dosage: 5 MILLIGRAM, BID
     Route: 048
  23. FLUCONAZOLE [Concomitant]
     Active Substance: FLUCONAZOLE
     Dosage: 150 MILLIGRAM, QD
     Route: 048
  24. MAGNESIUM OXIDE [Concomitant]
     Active Substance: MAGNESIUM OXIDE
     Dosage: 400 MILLIGRAM, QD
     Route: 048
  25. TRIAMCINOLONE ACETONIDE [Concomitant]
     Active Substance: TRIAMCINOLONE ACETONIDE
     Dosage: UNK UNK, QD, (PLICATION AT BEDTIME MOUTH/THROAT)
     Route: 061
  26. PROBIOTICS NOS [Concomitant]
     Active Substance: PROBIOTICS NOS
     Route: 048
  27. LOSARTAN POTASSIUM [Concomitant]
     Active Substance: LOSARTAN POTASSIUM
     Dosage: 100 MILLIGRAM, QD
     Route: 048

REACTIONS (23)
  - Deafness permanent [Not Recovered/Not Resolved]
  - Conductive deafness [Unknown]
  - Ear pain [Not Recovered/Not Resolved]
  - Pain [Unknown]
  - Emotional distress [Unknown]
  - Anxiety [Unknown]
  - Product use complaint [Unknown]
  - Blood thyroid stimulating hormone decreased [Unknown]
  - Tri-iodothyronine free increased [Unknown]
  - Blood creatinine increased [Unknown]
  - Hyperlipidaemia [Unknown]
  - Rhinitis allergic [Unknown]
  - Mouth injury [Unknown]
  - Hordeolum [Unknown]
  - Neck pain [Unknown]
  - Thyroxine free increased [Unknown]
  - Blood parathyroid hormone increased [Unknown]
  - Inappropriate schedule of product administration [Unknown]
  - Ear discomfort [Unknown]
  - Headache [Unknown]
  - Tinnitus [Not Recovered/Not Resolved]
  - Blood glucose increased [Unknown]
  - Nasal septum deviation [Unknown]

NARRATIVE: CASE EVENT DATE: 20210508
